FAERS Safety Report 7605077-8 (Version None)
Quarter: 2011Q3

REPORT INFORMATION
  Report Type: 
  Country: None (occurrence: None)
  Receive Date: 20110713
  Receipt Date: 20091122
  Transmission Date: 20111222
  Serious: Yes (Death, Other)
  Sender: FDA-Public Use
  Company Number: US-BAYER-201041949NA

PATIENT
  Age: 55 Year
  Sex: Female
  Weight: 104 kg

DRUGS (12)
  1. TRASYLOL [Suspect]
     Indication: TRICUSPID VALVE REPLACEMENT
  2. DICLOFENAC [Concomitant]
     Dosage: 75 MG, UNK
     Route: 048
  3. TRASYLOL [Suspect]
     Indication: TRICUSPID VALVE REPAIR
     Dosage: UNK
     Dates: start: 20051215
  4. TRASYLOL [Suspect]
     Indication: PRODUCT USED FOR UNKNOWN INDICATION
     Dosage: UNK
     Route: 042
     Dates: start: 20051006
  5. LISINOPRIL [Concomitant]
     Dosage: 20 MG, UNK
     Route: 048
  6. METOLAZONE [Concomitant]
     Dosage: 5 MG / 30 MINUTES PRIOR TO LASIX
     Route: 048
  7. TRASYLOL [Suspect]
     Indication: MITRAL VALVE REPLACEMENT
  8. COZAAR [Concomitant]
     Route: 048
  9. NEXIUM [Concomitant]
     Route: 048
  10. VICODIN [Concomitant]
     Route: 048
  11. BENADRYL [Concomitant]
     Dosage: 50 MG, UNK
  12. LASIX [Concomitant]
     Dosage: 40 MG, BID
     Route: 048

REACTIONS (12)
  - MULTI-ORGAN FAILURE [None]
  - EMOTIONAL DISTRESS [None]
  - UNEVALUABLE EVENT [None]
  - FEAR [None]
  - RENAL INJURY [None]
  - STRESS [None]
  - RENAL FAILURE [None]
  - PAIN [None]
  - INJURY [None]
  - DEATH [None]
  - RENAL IMPAIRMENT [None]
  - ANXIETY [None]
